FAERS Safety Report 5503184-7 (Version None)
Quarter: 2007Q4

REPORT INFORMATION
  Report Type: 
  Country: None (occurrence: None)
  Receive Date: 20071031
  Receipt Date: 20071020
  Transmission Date: 20080405
  Serious: Yes (Hospitalization, Other)
  Sender: FDA-Public Use
  Company Number: US-AMGEN-STX249027

PATIENT
  Sex: Female

DRUGS (2)
  1. ENBREL [Suspect]
     Indication: RHEUMATOID ARTHRITIS
     Route: 058
     Dates: start: 20030101
  2. METHOTREXATE [Concomitant]
     Indication: RHEUMATOID ARTHRITIS

REACTIONS (8)
  - ABASIA [None]
  - ARTHRALGIA [None]
  - BACK PAIN [None]
  - CATARACT [None]
  - DIABETES MELLITUS [None]
  - GOUT [None]
  - PAIN IN EXTREMITY [None]
  - THYROID MASS [None]
